FAERS Safety Report 13363247 (Version 1)
Quarter: 2017Q1

REPORT INFORMATION
  Report Type: Spontaneous
  Country: ES (occurrence: ES)
  Receive Date: 20170323
  Receipt Date: 20170323
  Transmission Date: 20170429
  Serious: Yes (Other)
  Sender: FDA-Public Use
  Company Number: ES-ALKABELLO-2017AA000752

PATIENT
  Age: 40 Year
  Sex: Male

DRUGS (1)
  1. PHARMALGEN (801) APIS MELLIFERA [Suspect]
     Active Substance: APIS MELLIFERA
     Route: 058
     Dates: start: 2016

REACTIONS (2)
  - Anaphylactic reaction [Recovered/Resolved]
  - Therapy change [Unknown]

NARRATIVE: CASE EVENT DATE: 20170223
